FAERS Safety Report 7770288-8 (Version None)
Quarter: 2011Q3

REPORT INFORMATION
  Report Type: 
  Country: None (occurrence: None)
  Receive Date: 20110922
  Receipt Date: 20100817
  Transmission Date: 20111222
  Serious: No
  Sender: FDA-Public Use
  Company Number: US-ASTRAZENECA-2010SE38622

PATIENT
  Age: 55 Year
  Sex: Male
  Weight: 72.6 kg

DRUGS (4)
  1. SEROQUEL [Suspect]
     Indication: INSOMNIA
     Route: 048
  2. SEROQUEL [Suspect]
     Route: 048
  3. SEROQUEL [Suspect]
     Indication: DEPRESSION
     Route: 048
  4. SEROQUEL [Suspect]
     Route: 048

REACTIONS (4)
  - WEIGHT INCREASED [None]
  - ENURESIS [None]
  - DISABILITY [None]
  - SNORING [None]
